FAERS Safety Report 24111720 (Version 1)
Quarter: 2024Q3

REPORT INFORMATION
  Report Type: Spontaneous
  Country: US (occurrence: US)
  Receive Date: 20240718
  Receipt Date: 20240718
  Transmission Date: 20241017
  Serious: No
  Sender: ELI LILLY AND CO
  Company Number: US-ELI_LILLY_AND_COMPANY-US202407009633

PATIENT
  Age: 76 Year
  Sex: Female

DRUGS (1)
  1. TALTZ [Suspect]
     Active Substance: IXEKIZUMAB
     Indication: Psoriasis
     Dosage: 80 MG, UNKNOWN
     Route: 058
     Dates: start: 2015

REACTIONS (8)
  - Urinary tract infection [Recovered/Resolved]
  - Fall [Unknown]
  - Wound [Unknown]
  - Contusion [Unknown]
  - Haematoma [Unknown]
  - Dizziness [Unknown]
  - Visual impairment [Unknown]
  - Disturbance in attention [Unknown]

NARRATIVE: CASE EVENT DATE: 20240101
